FAERS Safety Report 4708317-8 (Version None)
Quarter: 2005Q3

REPORT INFORMATION
  Report Type: 
  Country: None (occurrence: None)
  Receive Date: 20050705
  Receipt Date: 20050705
  Transmission Date: 20060218
  Serious: Yes (Hospitalization)
  Sender: FDA-Public Use
  Company Number: None

PATIENT
  Weight: 98.1 kg

DRUGS (1)
  1. ZONEGRAN [Suspect]
     Indication: CONVULSION
     Dosage: 200MG Q DAY ORAL
     Route: 048

REACTIONS (2)
  - ABDOMINAL PAIN UPPER [None]
  - BURNING SENSATION [None]
